FAERS Safety Report 12616645 (Version 3)
Quarter: 2016Q4

REPORT INFORMATION
  Report Type: Report from Study
  Country: None (occurrence: JP)
  Receive Date: 20160802
  Receipt Date: 20161111
  Transmission Date: 20170207
  Serious: Yes (Other)
  Sender: FDA-Public Use
  Company Number: JP-ABBVIE-16P-087-1650709-00

PATIENT
  Age: 66 Year
  Sex: Male
  Weight: 72.5 kg

DRUGS (8)
  1. NAPROXEN. [Concomitant]
     Active Substance: NAPROXEN
     Indication: GOUT
     Route: 048
  2. VIEKIRAX [Suspect]
     Active Substance: OMBITASVIR\PARITAPREVIR\RITONAVIR
     Indication: CHRONIC HEPATITIS C
     Dosage: AFTER BREAKFAST
     Route: 048
     Dates: start: 20160426, end: 20160606
  3. FEBUXOSTAT. [Concomitant]
     Active Substance: FEBUXOSTAT
     Indication: HYPERURICAEMIA
     Dosage: AFTER BREAKFAST
     Route: 048
  4. METHYLDOPA HYDRATE [Concomitant]
     Active Substance: METHYLDOPA
     Indication: HYPERTENSION
     Dosage: AFTER BREAKFAST AND SUPPER
     Route: 048
     Dates: start: 20160512
  5. ACETAMINOPHEN. [Concomitant]
     Active Substance: ACETAMINOPHEN
     Indication: PRODUCT USED FOR UNKNOWN INDICATION
     Dosage: BODY TEMPERATURE 38.5 DEGREES C OR OVER
     Route: 054
     Dates: start: 20160602
  6. OLMESARTAN MEDOXOMIL/AZELNIDIPINE [Concomitant]
     Indication: HYPERTENSION
     Route: 048
  7. OLMESARTAN MEDOXOMIL. [Concomitant]
     Active Substance: OLMESARTAN MEDOXOMIL
     Indication: HYPERTENSION
     Dosage: AFTER BREAKFAST
     Route: 048
     Dates: start: 20160426, end: 20160512
  8. DOXAZOSIN MESILATE [Concomitant]
     Active Substance: DOXAZOSIN MESYLATE
     Indication: HYPERTENSION
     Route: 048
     Dates: start: 20160512

REACTIONS (2)
  - Platelet count decreased [Recovered/Resolved]
  - Pyrexia [Recovered/Resolved]

NARRATIVE: CASE EVENT DATE: 20160601
